FAERS Safety Report 8034314-3 (Version None)
Quarter: 2012Q1

REPORT INFORMATION
  Report Type: 
  Country: None (occurrence: None)
  Receive Date: 20120110
  Receipt Date: 20111228
  Transmission Date: 20120608
  Serious: Yes (Other)
  Sender: FDA-Public Use
  Company Number: PHHY2011AU113361

PATIENT
  Age: 21 Year
  Sex: Male

DRUGS (5)
  1. MYCOPHENOLATE MOFETIL [Concomitant]
  2. BASILIXIMAB [Suspect]
     Indication: RENAL TRANSPLANT
  3. TACROLIMUS [Concomitant]
  4. PLASMAPHERESIS BLOOD-PACK SYSTEM INFUSION [Concomitant]
  5. PREDNISOLONE [Concomitant]

REACTIONS (5)
  - BLOOD CREATININE INCREASED [None]
  - KIDNEY TRANSPLANT REJECTION [None]
  - RENAL GRAFT LOSS [None]
  - CHRONIC ALLOGRAFT NEPHROPATHY [None]
  - COMPLICATIONS OF TRANSPLANTED KIDNEY [None]
